FAERS Safety Report 8500906-8 (Version None)
Quarter: 2012Q3

REPORT INFORMATION
  Report Type: 
  Country: None (occurrence: None)
  Receive Date: 20120710
  Receipt Date: 20120706
  Transmission Date: 20120928
  Serious: Yes (Hospitalization, Other)
  Sender: FDA-Public Use
  Company Number: PHHY2011US55759

PATIENT
  Sex: Female

DRUGS (8)
  1. GILENYA [Suspect]
     Indication: RELAPSING-REMITTING MULTIPLE SCLEROSIS
     Dosage: 0.5 MG, QD
     Route: 048
     Dates: start: 20110113
  2. LORTAB [Suspect]
     Indication: PAIN
     Dosage: 10 - 325 MG BID PRN
  3. DESITIN [Suspect]
  4. NUEDEXTA [Concomitant]
     Dosage: UNK UKN, UNK
     Route: 048
  5. SKELAXIN [Concomitant]
     Dosage: 800 MG, TID
  6. KEPPRA [Concomitant]
     Dosage: 500 MG, TID
     Route: 048
  7. LAMICTAL [Concomitant]
     Dosage: 150 MG, QID
  8. PREDNISONE [Concomitant]
     Dosage: 20 MG, PRN

REACTIONS (5)
  - SECONDARY PROGRESSIVE MULTIPLE SCLEROSIS [None]
  - STATUS EPILEPTICUS [None]
  - HERPES ZOSTER [None]
  - RASH [None]
  - PAIN [None]
